FAERS Safety Report 4341001-1 (Version None)
Quarter: 2004Q2

REPORT INFORMATION
  Report Type: 
  Country: None (occurrence: None)
  Receive Date: 20040413
  Receipt Date: 20040401
  Transmission Date: 20050107
  Serious: Yes (Hospitalization)
  Sender: FDA-Public Use
  Company Number: CO-JNJFOC-20040400769

PATIENT
  Age: 58 Year
  Sex: Female
  Weight: 48 kg

DRUGS (6)
  1. REMICADE [Suspect]
     Indication: RHEUMATOID ARTHRITIS
     Dosage: 200 MG, INTRAVENOUS
     Route: 042
     Dates: start: 20030128
  2. REMICADE [Suspect]
     Indication: RHEUMATOID ARTHRITIS
     Dosage: 200 MG, INTRAVENOUS
     Route: 042
     Dates: start: 20040301
  3. PREDNISONE [Concomitant]
  4. METHOTREXATE [Concomitant]
  5. VALDECOXIB [Concomitant]
  6. ALPRAZOLAM [Concomitant]

REACTIONS (7)
  - ASCITES [None]
  - COLITIS ISCHAEMIC [None]
  - COLITIS ULCERATIVE [None]
  - DRUG INTOLERANCE [None]
  - FOOD INTOLERANCE [None]
  - HEPATOTOXICITY [None]
  - TUBERCULOSIS [None]
